FAERS Safety Report 4308281-X (Version None)
Quarter: 2004Q1

REPORT INFORMATION
  Report Type: 
  Country: None (occurrence: None)
  Receive Date: 20040301
  Receipt Date: 20031030
  Transmission Date: 20041129
  Serious: No
  Sender: FDA-Public Use
  Company Number: US-BRISTOL-MYERS SQUIBB COMPANY-12423042

PATIENT
  Age: 45 Year
  Sex: Female
  Weight: 95 kg

DRUGS (7)
  1. GLUCOPHAGE XR [Suspect]
     Dosage: -500 MG 1 IN THE MORNING AND 2 IN THE EVENING.
     Route: 048
  2. GLUCOPHAGE [Suspect]
  3. ZOLOFT [Concomitant]
  4. SYNTHROID [Concomitant]
  5. FLONASE [Concomitant]
  6. STEROID CREAM [Concomitant]
  7. ZYRTEC [Concomitant]

REACTIONS (1)
  - DEFAECATION URGENCY [None]
